FAERS Safety Report 11664404 (Version 1)
Quarter: 2015Q4

REPORT INFORMATION
  Report Type: Spontaneous
  Country: US (occurrence: None)
  Receive Date: 20151026
  Receipt Date: 20151026
  Transmission Date: 20160304
  Serious: No
  Sender: FDA-Public Use
  Company Number: None

PATIENT
  Sex: Female

DRUGS (1)
  1. FACE WASH NEUTROGENA (BENZOYL PEROXIDE) [Suspect]
     Active Substance: BENZOYL PEROXIDE
     Indication: ACNE

REACTIONS (3)
  - Eyelid oedema [None]
  - Eyelid skin dryness [None]
  - Eyelids pruritus [None]

NARRATIVE: CASE EVENT DATE: 20151022
